FAERS Safety Report 8332894-1 (Version None)
Quarter: 2012Q1

REPORT INFORMATION
  Report Type: 
  Country: None (occurrence: None)
  Receive Date: 20120327
  Receipt Date: 20110315
  Transmission Date: 20120608
  Serious: Yes (Other)
  Sender: FDA-Public Use
  Company Number: PHHY2010US14437

PATIENT
  Age: 68 Year
  Sex: Female
  Weight: 86.1 kg

DRUGS (4)
  1. GLEEVEC [Suspect]
     Indication: CHRONIC MYELOID LEUKAEMIA
     Dosage: 200 MG, BID, ORAL, 300 MG, BID, ORAL
     Route: 048
     Dates: start: 20090113
  2. GLEEVEC [Suspect]
  3. AMLODIPINE [Concomitant]
  4. TRAZODONE HCL [Concomitant]

REACTIONS (8)
  - MUSCLE SPASMS [None]
  - MYALGIA [None]
  - JOINT SWELLING [None]
  - NAUSEA [None]
  - EYELID OEDEMA [None]
  - SWELLING [None]
  - HYPERSENSITIVITY [None]
  - HAEMATOCHEZIA [None]
